FAERS Safety Report 12848876 (Version 1)
Quarter: 2016Q4

REPORT INFORMATION
  Report Type: Spontaneous
  Country: US (occurrence: US)
  Receive Date: 20161007
  Receipt Date: 20161007
  Transmission Date: 20170207
  Serious: Yes (Other)
  Sender: FDA-Public Use
  Company Number: None

PATIENT
  Age: 45 Year
  Sex: Female
  Weight: 67.5 kg

DRUGS (12)
  1. LIPOLEAN [Suspect]
     Active Substance: AMINO ACIDS\MINERALS\VITAMINS
     Indication: VITAMIN B12 DECREASED
     Dosage: QUANTITY:30 INJECTION(S);OTHER FREQUENCY:3 TIMES PER WEEK;OTHER ROUTE:INJECTED INTO FAT?
     Dates: start: 20160910, end: 20160913
  2. WP THYROID 65 MG [Concomitant]
     Active Substance: THYROID, PORCINE
  3. ADRENAL SUPPORT [Concomitant]
     Active Substance: HOMEOPATHICS
  4. FISH OIL [Concomitant]
     Active Substance: FISH OIL
  5. TURMERIC [Concomitant]
     Active Substance: TURMERIC
  6. T3 [Concomitant]
     Active Substance: LIOTHYRONINE SODIUM
  7. SELENIUM [Concomitant]
     Active Substance: SELENIUM
  8. MULTI VITAMIN [Concomitant]
     Active Substance: VITAMINS
  9. POTASSIUM [Concomitant]
     Active Substance: POTASSIUM
  10. TRACE MINERALS [Concomitant]
  11. VITAMIN D [Concomitant]
     Active Substance: CHOLECALCIFEROL
  12. MAGNESIUM [Concomitant]
     Active Substance: MAGNESIUM

REACTIONS (1)
  - Rash [None]

NARRATIVE: CASE EVENT DATE: 20160913
